FAERS Safety Report 16000281 (Version 3)
Quarter: 2019Q1

REPORT INFORMATION
  Report Type: Spontaneous
  Country: FI (occurrence: FI)
  Receive Date: 20190225
  Receipt Date: 20190325
  Transmission Date: 20190418
  Serious: Yes (Other)
  Sender: FDA-Public Use
  Company Number: FI-009507513-1901FIN010777

PATIENT
  Age: 42 Year
  Sex: Female

DRUGS (3)
  1. NUVARING [Suspect]
     Active Substance: ETHINYL ESTRADIOL\ETONOGESTREL
     Dosage: 1 RING
     Route: 067
     Dates: start: 201811, end: 201812
  2. NUVARING [Suspect]
     Active Substance: ETHINYL ESTRADIOL\ETONOGESTREL
     Dosage: 1 UNK
     Route: 067
     Dates: start: 201902
  3. NUVARING [Suspect]
     Active Substance: ETHINYL ESTRADIOL\ETONOGESTREL
     Indication: CONTRACEPTION
     Dosage: 1 RING
     Route: 067
     Dates: start: 2011, end: 2018

REACTIONS (8)
  - Medical device site discomfort [Recovered/Resolved]
  - Device deployment issue [Recovered/Resolved]
  - Abdominal pain lower [Recovered/Resolved]
  - Uterine pain [Recovered/Resolved]
  - Vaginal haemorrhage [Recovered/Resolved]
  - Uterine haemorrhage [Recovered/Resolved]
  - Product quality issue [Unknown]
  - Inappropriate schedule of product administration [Unknown]

NARRATIVE: CASE EVENT DATE: 2011
